FAERS Safety Report 6574299-X (Version None)
Quarter: 2010Q1

REPORT INFORMATION
  Report Type: 
  Country: None (occurrence: None)
  Receive Date: 20100201
  Receipt Date: 20100119
  Transmission Date: 20100710
  Serious: Yes (Hospitalization)
  Sender: FDA-Public Use
  Company Number: 1000011556

PATIENT
  Age: 80 Year
  Sex: Female

DRUGS (9)
  1. ESCITALOPRAM [Suspect]
     Dosage: 5 MG (5 MG, 1 IN 1 D), ORAL; 10 MG (10 MG, 1 IN 1 D), ORAL
     Route: 048
     Dates: start: 20091123, end: 20091126
  2. ESCITALOPRAM [Suspect]
     Dosage: 5 MG (5 MG, 1 IN 1 D), ORAL; 10 MG (10 MG, 1 IN 1 D), ORAL
     Route: 048
     Dates: start: 20091127
  3. RISPERDAL [Suspect]
     Dosage: 3 MG (3 MG, 1 IN 1 D),ORAL
     Route: 048
     Dates: start: 20091122, end: 20091126
  4. RISPERDAL [Suspect]
     Dosage: 4 MG (4 MG, 1 IN 1 D); 3 MG (3 MG,1 IN 1 D),ORAL;  2 MG (2 MG,1 IN 1 D), ORAL
     Route: 048
     Dates: start: 20091127, end: 20091130
  5. RISPERDAL [Suspect]
     Dosage: 4 MG (4 MG, 1 IN 1 D); 3 MG (3 MG,1 IN 1 D),ORAL;  2 MG (2 MG,1 IN 1 D), ORAL
     Route: 048
     Dates: start: 20091202, end: 20091202
  6. RISPERDAL [Suspect]
     Dosage: 4 MG (4 MG, 1 IN 1 D); 3 MG (3 MG,1 IN 1 D),ORAL;  2 MG (2 MG,1 IN 1 D), ORAL
     Route: 048
     Dates: start: 20091203
  7. TRITTICO (TABLETS) [Concomitant]
  8. DISTRANEURIN (TABLETS) [Concomitant]
  9. TEMESTA (TABLETS) [Concomitant]

REACTIONS (3)
  - GAIT DISTURBANCE [None]
  - HYPERTONIA [None]
  - PLEUROTHOTONUS [None]
